FAERS Safety Report 5937707-0 (Version None)
Quarter: 2008Q4

REPORT INFORMATION
  Report Type: 
  Country: None (occurrence: None)
  Receive Date: 20081031
  Receipt Date: 20081010
  Transmission Date: 20090506
  Serious: Yes (Other)
  Sender: FDA-Public Use
  Company Number: PHHO2008JP12052

PATIENT
  Age: 57 Year
  Sex: Female

DRUGS (3)
  1. FAMVIR [Suspect]
     Indication: HERPES ZOSTER
     Dosage: 1500 MG, QD
     Route: 048
     Dates: start: 20080926, end: 20080926
  2. NAPROXEN [Suspect]
     Indication: PAIN
     Dosage: 600 MG/ DAY
     Dates: start: 20080926, end: 20080926
  3. REBAMIPIDE [Suspect]
     Indication: GASTRIC MUCOSAL LESION
     Dosage: 300 MG/ DAY
     Dates: start: 20080926, end: 20080926

REACTIONS (2)
  - DYSPNOEA [None]
  - EYELID OEDEMA [None]
